FAERS Safety Report 20164793 (Version 4)
Quarter: 2022Q1

REPORT INFORMATION
  Report Type: Spontaneous
  Country: US (occurrence: US)
  Receive Date: 20211209
  Receipt Date: 20220120
  Transmission Date: 20220423
  Serious: Yes (Other)
  Sender: FDA-Public Use
  Company Number: US-AMGEN-USASP2021190154

PATIENT
  Age: 66 Year
  Sex: Female

DRUGS (1)
  1. PROLIA [Suspect]
     Active Substance: DENOSUMAB
     Indication: Osteoporosis postmenopausal
     Dosage: 60 MILLIGRAM, Q6MO
     Route: 058
     Dates: start: 20210728

REACTIONS (14)
  - Polyarthritis [Unknown]
  - Visual impairment [Unknown]
  - Blood pressure increased [Unknown]
  - Vascular compression [Unknown]
  - Loose tooth [Unknown]
  - Glossodynia [Unknown]
  - Swollen tongue [Unknown]
  - Dental restoration failure [Unknown]
  - Toothache [Unknown]
  - Arthritis [Unknown]
  - Arthralgia [Unknown]
  - Back pain [Unknown]
  - Pain [Unknown]
  - Urticaria [Unknown]

NARRATIVE: CASE EVENT DATE: 20210101
